FAERS Safety Report 7108641-8 (Version None)
Quarter: 2010Q4

REPORT INFORMATION
  Report Type: 
  Country: None (occurrence: None)
  Receive Date: 20101112
  Receipt Date: 20101104
  Transmission Date: 20110411
  Serious: Yes (Other)
  Sender: FDA-Public Use
  Company Number: 2010SP058432

PATIENT
  Age: 65 Year
  Sex: Female

DRUGS (4)
  1. TEMODAL [Suspect]
     Indication: PRODUCT USED FOR UNKNOWN INDICATION
     Dosage: 250 MG; ONCE;
     Dates: start: 20100610, end: 20100610
  2. CALTRATE /00108001/ [Concomitant]
  3. DEXAMETHASONE [Concomitant]
  4. OSTELIN /00107901/ [Concomitant]

REACTIONS (7)
  - CONVULSION [None]
  - FATIGUE [None]
  - MEMORY IMPAIRMENT [None]
  - MUSCLE SPASMS [None]
  - SYNCOPE [None]
  - TREMOR [None]
  - VOMITING [None]
